FAERS Safety Report 13424691 (Version 2)
Quarter: 2017Q2

REPORT INFORMATION
  Report Type: Spontaneous
  Country: JP (occurrence: JP)
  Receive Date: 20170410
  Receipt Date: 20170502
  Transmission Date: 20170830
  Serious: Yes (Death, Hospitalization)
  Sender: FDA-Public Use
  Company Number: JP-B.I. PHARMACEUTICALS,INC./RIDGEFIELD-2017-NB-000550

PATIENT
  Age: 69 Year
  Sex: Male

DRUGS (4)
  1. MUCOSOLVAN [Concomitant]
     Active Substance: AMBROXOL HYDROCHLORIDE
     Indication: PRODUCTIVE COUGH
     Route: 048
     Dates: end: 20170301
  2. HANGESHASHINTO [Concomitant]
     Active Substance: HERBALS
     Indication: DIARRHOEA
     Route: 048
     Dates: start: 20170124, end: 20170223
  3. GILOTRIF [Suspect]
     Active Substance: AFATINIB
     Indication: LUNG NEOPLASM MALIGNANT
     Route: 048
     Dates: start: 20170124, end: 20170131
  4. HERBAL NOS [Concomitant]
     Active Substance: HERBALS
     Indication: GASTRITIS
     Route: 048
     Dates: end: 20170301

REACTIONS (3)
  - Interstitial lung disease [Fatal]
  - Acute respiratory distress syndrome [Fatal]
  - Lymphangiosis carcinomatosa [Fatal]

NARRATIVE: CASE EVENT DATE: 20170131
